FAERS Safety Report 6120412-8 (Version None)
Quarter: 2009Q1

REPORT INFORMATION
  Report Type: 
  Country: None (occurrence: None)
  Receive Date: 20090316
  Receipt Date: 20090316
  Transmission Date: 20090719
  Serious: Yes (Other)
  Sender: FDA-Public Use
  Company Number: None

PATIENT
  Sex: Female
  Weight: 62.5964 kg

DRUGS (2)
  1. KEPPRA [Suspect]
     Indication: ARTERIOSCLEROSIS MOENCKEBERG-TYPE
     Dosage: 500MCG 3X A DAY
  2. KEPPRA [Suspect]
     Indication: CONVULSION
     Dosage: 500MCG 3X A DAY

REACTIONS (4)
  - CONDITION AGGRAVATED [None]
  - CONVULSION [None]
  - DRUG TOLERANCE DECREASED [None]
  - THERAPEUTIC RESPONSE UNEXPECTED WITH DRUG SUBSTITUTION [None]
